FAERS Safety Report 16690384 (Version 8)
Quarter: 2020Q2

REPORT INFORMATION
  Report Type: Spontaneous
  Country: US (occurrence: US)
  Receive Date: 20190810
  Receipt Date: 20200413
  Transmission Date: 20200713
  Serious: No
  Sender: FDA-Public Use
  Company Number: US-BIOGEN-2019BI00761434

PATIENT
  Age: 47 Year
  Sex: Female

DRUGS (2)
  1. TECFIDERA [Suspect]
     Active Substance: DIMETHYL FUMARATE
     Indication: MULTIPLE SCLEROSIS
     Route: 048
     Dates: start: 20190701
  2. TECFIDERA [Suspect]
     Active Substance: DIMETHYL FUMARATE
     Route: 048
     Dates: start: 20190707

REACTIONS (25)
  - Back pain [Not Recovered/Not Resolved]
  - Gastric disorder [Recovered/Resolved]
  - Weight increased [Unknown]
  - Dermatitis contact [Unknown]
  - Constipation [Unknown]
  - Headache [Not Recovered/Not Resolved]
  - Urticaria [Unknown]
  - Fatigue [Unknown]
  - Abdominal distension [Recovered/Resolved]
  - Faecal volume decreased [Unknown]
  - Feeling hot [Not Recovered/Not Resolved]
  - Erythema [Unknown]
  - Abnormal faeces [Unknown]
  - Nervousness [Unknown]
  - Abdominal pain upper [Not Recovered/Not Resolved]
  - Stress [Not Recovered/Not Resolved]
  - Muscle spasticity [Not Recovered/Not Resolved]
  - Emotional disorder [Unknown]
  - Head discomfort [Unknown]
  - Pruritus [Unknown]
  - Product dose omission [Unknown]
  - Inappropriate schedule of product administration [Unknown]
  - Faeces soft [Unknown]
  - Diarrhoea [Recovered/Resolved]
  - White blood cell count decreased [Unknown]

NARRATIVE: CASE EVENT DATE: 201908
